FAERS Safety Report 17267715 (Version 1)
Quarter: 2020Q1

REPORT INFORMATION
  Report Type: Spontaneous
  Country: US (occurrence: US)
  Receive Date: 20200114
  Receipt Date: 20200114
  Transmission Date: 20200409
  Serious: No
  Sender: FDA-Public Use
  Company Number: US-VERTEX PHARMACEUTICALS-2020-000409

PATIENT
  Sex: Male
  Weight: 73 kg

DRUGS (14)
  1. CAYSTON [Concomitant]
     Active Substance: AZTREONAM
     Dosage: UNK
  2. TOBI PODHALER [Concomitant]
     Active Substance: TOBRAMYCIN
     Dosage: UNK
  3. CREON [Concomitant]
     Active Substance: PANCRELIPASE AMYLASE\PANCRELIPASE LIPASE\PANCRELIPASE PROTEASE
     Dosage: UNK
  4. ALBUTEROL [SALBUTAMOL] [Concomitant]
     Active Substance: ALBUTEROL
     Dosage: UNK
  5. FLUTICASONE. [Concomitant]
     Active Substance: FLUTICASONE
     Dosage: UNK
  6. PROAIR HFA [Concomitant]
     Active Substance: ALBUTEROL SULFATE
     Dosage: UNK
  7. ADVAIR HFA [Concomitant]
     Active Substance: FLUTICASONE PROPIONATE\SALMETEROL XINAFOATE
     Dosage: UNK
  8. AZITHROMYCIN ANHYDROUS. [Concomitant]
     Active Substance: AZITHROMYCIN ANHYDROUS
     Dosage: UNK
  9. SODIUM CHLORIDE. [Concomitant]
     Active Substance: SODIUM CHLORIDE
     Dosage: UNK
  10. ESOMEPRAZOLE. [Concomitant]
     Active Substance: ESOMEPRAZOLE MAGNESIUM
     Dosage: UNK
  11. ORKAMBI [Suspect]
     Active Substance: IVACAFTOR\LUMACAFTOR
     Indication: CYSTIC FIBROSIS
     Dosage: 200MG/125MG TABLETS, BID
     Route: 048
  12. BOOST [Concomitant]
     Active Substance: DIETARY SUPPLEMENT
     Dosage: UNK
  13. LIQUIGEN [Concomitant]
     Active Substance: MEDIUM-CHAIN TRIGLYCERIDES
     Dosage: UNK
  14. PULMOZYME [Concomitant]
     Active Substance: DORNASE ALFA
     Dosage: UNK

REACTIONS (3)
  - Dysgeusia [Unknown]
  - Chest pain [Unknown]
  - Respiratory tract congestion [Unknown]
